FAERS Safety Report 19149659 (Version 8)
Quarter: 2024Q3

REPORT INFORMATION
  Report Type: Report from Study
  Country: US (occurrence: US)
  Receive Date: 20210417
  Receipt Date: 20240817
  Transmission Date: 20241016
  Serious: Yes (Life-Threatening, Other)
  Sender: AUROBINDO
  Company Number: US-AUROBINDO-AUR-APL-2021-015533

PATIENT
  Age: 42 Year
  Sex: Female
  Weight: 69.4 kg

DRUGS (6)
  1. BELINOSTAT [Suspect]
     Active Substance: BELINOSTAT
     Indication: Chondrosarcoma
     Dosage: 9000 MILLIGRAM
     Route: 065
     Dates: start: 20210201, end: 20210503
  2. BELINOSTAT [Suspect]
     Active Substance: BELINOSTAT
     Dosage: 9000 MILLIGRAM
     Route: 065
     Dates: start: 20210301
  3. BELINOSTAT [Suspect]
     Active Substance: BELINOSTAT
     Dosage: 7400 MILLIGRAM
     Route: 065
     Dates: start: 20210201
  4. GUADECITABINE [Suspect]
     Active Substance: GUADECITABINE
     Indication: Chondrosarcoma
     Dosage: 400 MILLIGRAM
     Route: 065
     Dates: start: 20210201
  5. GUADECITABINE [Suspect]
     Active Substance: GUADECITABINE
     Dosage: 400 MILLIGRAM
     Route: 065
     Dates: start: 20210301
  6. GUADECITABINE [Suspect]
     Active Substance: GUADECITABINE
     Dosage: 365 MILLIGRAM
     Route: 065
     Dates: start: 20210201

REACTIONS (18)
  - Neutrophil count decreased [Recovering/Resolving]
  - White blood cell count decreased [Recovering/Resolving]
  - Pain [Unknown]
  - Musculoskeletal discomfort [Recovering/Resolving]
  - Musculoskeletal stiffness [Recovering/Resolving]
  - Cough [Unknown]
  - Nausea [Unknown]
  - Fatigue [Unknown]
  - Headache [Unknown]
  - Vomiting [Unknown]
  - Injection site reaction [Unknown]
  - Infusion related reaction [Unknown]
  - Constipation [Unknown]
  - Hypophosphataemia [Unknown]
  - Anaemia [Unknown]
  - Paraesthesia [Unknown]
  - Hypertension [Unknown]
  - Pain in extremity [Unknown]

NARRATIVE: CASE EVENT DATE: 20210201
